FAERS Safety Report 7833891-2 (Version None)
Quarter: 2011Q4

REPORT INFORMATION
  Report Type: 
  Country: None (occurrence: None)
  Receive Date: 20111020
  Receipt Date: 20111006
  Transmission Date: 20120403
  Serious: Yes (Hospitalization)
  Sender: FDA-Public Use
  Company Number: LTI2011A00273

PATIENT
  Age: 75 Year
  Sex: Male

DRUGS (4)
  1. PLAVIX [Concomitant]
  2. ACTOS [Suspect]
     Indication: DIABETES MELLITUS
     Dosage: 30 MG (30 MG, 1 IN 1 D) ORAL
     Route: 048
     Dates: start: 20070101, end: 20110201
  3. AMLODIPINE BESYLATE [Concomitant]
  4. ATORVASTATIN CALCIUM [Concomitant]

REACTIONS (1)
  - BLADDER TRANSITIONAL CELL CARCINOMA [None]
